FAERS Safety Report 23889936 (Version 1)
Quarter: 2024Q2

REPORT INFORMATION
  Report Type: Spontaneous
  Country: US (occurrence: US)
  Receive Date: 20240523
  Receipt Date: 20240523
  Transmission Date: 20240716
  Serious: No
  Sender: FDA-Public Use
  Company Number: US-GALDERMA-US2024007461

PATIENT

DRUGS (6)
  1. PROACTIV MD ADAPALENE ACNE TREATMENT [Suspect]
     Active Substance: ADAPALENE
     Indication: Scar
     Dosage: 1 DOSAGE FORM, TIW, THREE TIMES A WEEK AT NIGHTS
     Route: 061
     Dates: start: 202402, end: 202403
  2. Proactiv MD Ultra Gentle Cleanser [Concomitant]
     Indication: Scar
     Dosage: 1 DOSAGE FORM, BID, 2 OR MORE TIMES A DAY
     Route: 061
     Dates: start: 202402, end: 202403
  3. COSMETICS [Concomitant]
     Active Substance: COSMETICS
     Indication: Scar
     Dosage: 1 DOSAGE FORM, BID, 2 OR MORE TIMES A DAY
     Route: 061
     Dates: start: 202402, end: 202403
  4. COSMETICS [Concomitant]
     Active Substance: COSMETICS
     Indication: Scar
     Dosage: 1 DOSAGE FORM, BID, 2 OR MORE TIMES A DAY
     Route: 061
     Dates: start: 202402, end: 202403
  5. COSMETICS [Concomitant]
     Active Substance: COSMETICS
     Indication: Scar
     Dosage: 1 DOSAGE FORM, BID, 2 OR MORE TIMES A DAY
     Route: 061
     Dates: start: 202402, end: 202403
  6. PROACTIV EMERGENCY BLEMISH RELIEF [Concomitant]
     Active Substance: BENZOYL PEROXIDE
     Indication: Scar
     Dosage: 1 DOSAGE FORM, BID, 2 OR MORE TIMES A DAY
     Route: 061
     Dates: start: 202402, end: 202403

REACTIONS (7)
  - Chemical burn of skin [Recovered/Resolved]
  - Rash macular [Recovered/Resolved]
  - Acne [Recovered/Resolved]
  - Product use in unapproved indication [Recovered/Resolved]
  - Underdose [Recovered/Resolved]
  - Inappropriate schedule of product administration [Recovered/Resolved]
  - Drug ineffective for unapproved indication [Recovered/Resolved]

NARRATIVE: CASE EVENT DATE: 20240201
